FAERS Safety Report 6433655-0 (Version None)
Quarter: 2009Q4

REPORT INFORMATION
  Report Type: 
  Country: None (occurrence: None)
  Receive Date: 20091110
  Receipt Date: 20091106
  Transmission Date: 20100525
  Serious: Yes (Death, Other)
  Sender: FDA-Public Use
  Company Number: PHEH2009US13333

PATIENT
  Sex: Male
  Weight: 88.9 kg

DRUGS (11)
  1. EXJADE [Suspect]
     Dosage: 1500 MG DAILY
     Route: 048
     Dates: end: 20090501
  2. ETOPOSIDE [Concomitant]
  3. PREDNISONE [Concomitant]
  4. DOXORUBICIN HCL [Concomitant]
  5. GEMCITABINE [Concomitant]
  6. CYCLOPHOSPHAMIDE [Concomitant]
  7. VINCRISTINE [Concomitant]
  8. CARMUSTINE [Concomitant]
  9. CYTARABINE [Concomitant]
  10. MELPHALAN [Concomitant]
  11. ALLOGENIC TRANSPLANTATION [Concomitant]

REACTIONS (7)
  - DEATH [None]
  - DISEASE PROGRESSION [None]
  - GASTROINTESTINAL DISORDER [None]
  - GRAFT VERSUS HOST DISEASE [None]
  - INFECTION [None]
  - PULMONARY ALVEOLAR HAEMORRHAGE [None]
  - SKIN DISORDER [None]
